FAERS Safety Report 10897524 (Version 1)
Quarter: 2015Q1

REPORT INFORMATION
  Report Type: Spontaneous
  Country: US (occurrence: None)
  Receive Date: 20150302
  Receipt Date: 20150302
  Transmission Date: 20150721
  Serious: Yes (Life-Threatening, Hospitalization, Disabling, Other)
  Sender: FDA-Public Use
  Company Number: None

PATIENT
  Age: 56 Year
  Sex: Female
  Weight: 63.5 kg

DRUGS (5)
  1. GENERAL VITAMINS [Concomitant]
  2. NEBULIZER [Concomitant]
     Active Substance: UNSPECIFIED INGREDIENT
  3. CPSP [Concomitant]
  4. CELEBREX [Suspect]
     Active Substance: CELECOXIB
     Indication: SWELLING
     Route: 048
     Dates: start: 20000120, end: 20000630
  5. OXYGEN. [Concomitant]
     Active Substance: OXYGEN

REACTIONS (4)
  - Colon cancer [None]
  - Sleep apnoea syndrome [None]
  - Stevens-Johnson syndrome [None]
  - Muscular weakness [None]

NARRATIVE: CASE EVENT DATE: 20030621
